FAERS Safety Report 7842183-7 (Version None)
Quarter: 2011Q4

REPORT INFORMATION
  Report Type: 
  Country: None (occurrence: None)
  Receive Date: 20111019
  Receipt Date: 20111010
  Transmission Date: 20120403
  Serious: Yes (Hospitalization)
  Sender: FDA-Public Use
  Company Number: 2011SP048098

PATIENT
  Age: 50 Year
  Sex: Female

DRUGS (3)
  1. MIRTAZAPINE [Suspect]
     Indication: DEPRESSION
     Dosage: 30 MG;QD;PO ; 45 MG;QD;PO
     Route: 048
  2. CLONAZEPAM [Concomitant]
  3. CITALOPRAM HYDROBROMIDE [Concomitant]

REACTIONS (16)
  - INSOMNIA [None]
  - DYSPHORIA [None]
  - TRICUSPID VALVE INCOMPETENCE [None]
  - PULMONARY HYPERTENSION [None]
  - PLATELET COUNT DECREASED [None]
  - DEPRESSION [None]
  - SINUS TACHYCARDIA [None]
  - ATELECTASIS [None]
  - LUNG INFECTION [None]
  - SYNCOPE [None]
  - PALPITATIONS [None]
  - DISEASE RECURRENCE [None]
  - PULMONARY EMBOLISM [None]
  - IRRITABILITY [None]
  - DEEP VEIN THROMBOSIS [None]
  - ANAEMIA [None]
